FAERS Safety Report 21571932 (Version 1)
Quarter: 2022Q4

REPORT INFORMATION
  Report Type: Spontaneous
  Country: US (occurrence: US)
  Receive Date: 20221109
  Receipt Date: 20221109
  Transmission Date: 20230113
  Serious: No
  Sender: FDA-Public Use
  Company Number: US-PFIZER INC-202200825354

PATIENT
  Age: 62 Year
  Sex: Male

DRUGS (2)
  1. RAPAMUNE [Suspect]
     Active Substance: SIROLIMUS
     Dosage: UNK, DAILY (4.5 MLS (4.5 MG) BY G-TUBE DAILY, QTY 405 ML)
  2. RAPAMUNE [Suspect]
     Active Substance: SIROLIMUS
     Dosage: UNK, DAILY (2MLS (2MGS) BY G-TUBE ROUTE DAILY)

REACTIONS (2)
  - Off label use [Unknown]
  - Vocal cord disorder [Unknown]
